FAERS Safety Report 14917420 (Version 1)
Quarter: 2018Q2

REPORT INFORMATION
  Report Type: Spontaneous
  Country: GB (occurrence: GB)
  Receive Date: 20180521
  Receipt Date: 20180521
  Transmission Date: 20180711
  Serious: Yes (Other)
  Sender: FDA-Public Use
  Company Number: GB-TEVA-2018-GB-894262

PATIENT
  Age: 79 Year
  Sex: Male
  Weight: 73 kg

DRUGS (12)
  1. CLINITAS [Concomitant]
     Dosage: RIGHT EYE 3-6 TIMES/DAY
     Route: 050
     Dates: start: 20170622
  2. PREDSOL [Concomitant]
     Active Substance: PREDNISOLONE
     Dosage: 1 DOSAGE FORMS DAILY; TO RIGHT EYE
     Route: 047
     Dates: start: 20161208
  3. RANITIDINE. [Concomitant]
     Active Substance: RANITIDINE
     Dosage: 2 DOSAGE FORMS DAILY;
     Route: 065
     Dates: start: 20160727
  4. PARACETAMOL [Concomitant]
     Active Substance: ACETAMINOPHEN
     Dosage: 8 DOSAGE FORMS DAILY;
     Dates: start: 20160727
  5. DOMPERIDONE [Concomitant]
     Active Substance: DOMPERIDONE
     Dosage: 3 DOSAGE FORMS DAILY;
     Route: 065
     Dates: start: 20160727
  6. TAMSULOSIN HYDROCHLORIDE. [Concomitant]
     Active Substance: TAMSULOSIN HYDROCHLORIDE
     Dosage: 1 DOSAGE FORMS DAILY;
     Route: 065
     Dates: start: 20160727
  7. ATORVASTATIN [Concomitant]
     Active Substance: ATORVASTATIN
     Dosage: 1 DOSAGE FORMS DAILY; NIGHT
     Route: 065
     Dates: start: 20160727
  8. ACETYLSALICYLIC ACID [Concomitant]
     Active Substance: ASPIRIN
     Dosage: 1 DOSAGE FORMS DAILY;
     Dates: start: 20160727
  9. FINASTERIDE. [Suspect]
     Active Substance: FINASTERIDE
     Route: 065
     Dates: start: 20170919
  10. LISINOPRIL. [Concomitant]
     Active Substance: LISINOPRIL
     Dosage: 1 DOSAGE FORMS DAILY; NIGHT
     Dates: start: 20160727
  11. ACICLOVIR [Concomitant]
     Active Substance: ACYCLOVIR
     Dosage: 1 DOSAGE FORMS DAILY;
     Route: 065
     Dates: start: 20160727
  12. BRINZOLAMIDE [Concomitant]
     Active Substance: BRINZOLAMIDE
     Dosage: 2 GTT DAILY; RIGHT EYE
     Route: 050
     Dates: start: 20160727

REACTIONS (1)
  - Blood cholesterol increased [Unknown]

NARRATIVE: CASE EVENT DATE: 20171117
